FAERS Safety Report 10503650 (Version 1)
Quarter: 2014Q4

REPORT INFORMATION
  Report Type: Spontaneous
  Country: DE (occurrence: None)
  Receive Date: 20141003
  Receipt Date: 20141003
  Transmission Date: 20150528
  Serious: No
  Sender: FDA-Public Use
  Company Number: DE-LHC-2014081

PATIENT
  Sex: Female

DRUGS (1)
  1. CONOXIA [Suspect]
     Active Substance: OXYGEN
     Route: 055

REACTIONS (4)
  - Burns third degree [None]
  - Burns second degree [None]
  - Wound necrosis [None]
  - Device leakage [None]

NARRATIVE: CASE EVENT DATE: 20140819
